APPROVED DRUG PRODUCT: CODEPREX
Active Ingredient: CHLORPHENIRAMINE POLISTIREX; CODEINE POLISTIREX
Strength: EQ 4MG MALEATE/5ML;EQ 20MG BASE/5ML
Dosage Form/Route: SUSPENSION, EXTENDED RELEASE;ORAL
Application: N021369 | Product #001
Applicant: LANNETT CO INC
Approved: Jun 21, 2004 | RLD: No | RS: No | Type: DISCN